FAERS Safety Report 9919170 (Version 2)
Quarter: 2015Q4

REPORT INFORMATION
  Report Type: Spontaneous
  Country: US (occurrence: US)
  Receive Date: 20140224
  Receipt Date: 20151120
  Transmission Date: 20160305
  Serious: Yes (Hospitalization)
  Sender: FDA-Public Use
  Company Number: US-ASTELLAS-2014US001653

PATIENT
  Sex: Female

DRUGS (2)
  1. ASTAGRAF XL [Suspect]
     Active Substance: TACROLIMUS
     Indication: RENAL TRANSPLANT
     Route: 048
     Dates: start: 20131121
  2. ASTAGRAF XL [Suspect]
     Active Substance: TACROLIMUS
     Route: 048

REACTIONS (1)
  - Malaise [Unknown]
